FAERS Safety Report 9223025 (Version 1)
Quarter: 2013Q2

REPORT INFORMATION
  Report Type: Spontaneous
  Country: GB (occurrence: GB)
  Receive Date: 20130410
  Receipt Date: 20130410
  Transmission Date: 20140414
  Serious: Yes (Death)
  Sender: FDA-Public Use
  Company Number: GB-TEVA-396513ISR

PATIENT
  Age: 24 Year
  Sex: Female

DRUGS (2)
  1. AMITRIPTYLINE [Suspect]
     Dosage: 1 TABLET AT NIGHT
     Route: 048
  2. FORZA RASPBERRY KETONE 2:2:1 [Suspect]
     Dosage: UNKNOWN
     Route: 048

REACTIONS (3)
  - Respiratory arrest [Not Recovered/Not Resolved]
  - Intentional overdose [Fatal]
  - Cardiac arrest [Not Recovered/Not Resolved]
